FAERS Safety Report 6474081-8 (Version None)
Quarter: 2009Q4

REPORT INFORMATION
  Report Type: 
  Country: None (occurrence: None)
  Receive Date: 20091204
  Receipt Date: 20091125
  Transmission Date: 20100525
  Serious: Yes (Hospitalization)
  Sender: FDA-Public Use
  Company Number: FR-ASTRAZENECA-2009SE28753

PATIENT
  Age: 19051 Day
  Sex: Female

DRUGS (14)
  1. NAROPIN [Suspect]
     Indication: LOCAL ANAESTHESIA
     Route: 065
     Dates: start: 20091019, end: 20091019
  2. ZINNAT [Suspect]
     Route: 042
     Dates: start: 20091019, end: 20091019
  3. IBUPROFEN [Concomitant]
  4. PRAZEPAM [Concomitant]
  5. NOVATREX [Concomitant]
  6. OMEPRAZOLE [Concomitant]
  7. PROTHIADEN [Concomitant]
  8. ECHINACEA PURPUREA [Concomitant]
  9. SPECIAFOLDINE [Concomitant]
  10. PREDNISOLONE [Concomitant]
  11. DOLIPRANE [Concomitant]
  12. IZILOX [Concomitant]
     Dates: start: 20091008
  13. NUREFLEX [Concomitant]
  14. CACIT VITAMINE D3 [Concomitant]

REACTIONS (1)
  - ANAPHYLACTIC SHOCK [None]
